FAERS Safety Report 5165717-2 (Version None)
Quarter: 2006Q4

REPORT INFORMATION
  Report Type: 
  Country: None (occurrence: None)
  Receive Date: 20061128
  Receipt Date: 20061122
  Transmission Date: 20070319
  Serious: Yes (Death, Life-Threatening)
  Sender: FDA-Public Use
  Company Number: 200611AGG00516

PATIENT
  Age: 74 Year
  Sex: Female

DRUGS (9)
  1. AGGRASTAT [Suspect]
     Indication: CORONARY ANGIOPLASTY
     Dosage: 7.5 MCG/MIN; IV (ICH 042)
     Route: 042
     Dates: start: 20060616, end: 20060616
  2. ACETYLCYSTEINE [Concomitant]
  3. ISCOVER (CLOPIDOGREL BISULFATE) [Concomitant]
  4. NEXIUM [Concomitant]
  5. SIMVAHEXAL (SIMVASTATIN) [Concomitant]
  6. ASPIRIN [Concomitant]
  7. ENALAPRIL MALEATE [Concomitant]
  8. HEPARIN [Concomitant]
  9. METOPROLOL SUCCINATE [Concomitant]

REACTIONS (5)
  - ANAEMIA [None]
  - HYPOTENSION [None]
  - INCORRECT DOSE ADMINISTERED [None]
  - POST PROCEDURAL COMPLICATION [None]
  - SHOCK HAEMORRHAGIC [None]
